FAERS Safety Report 11146859 (Version 4)
Quarter: 2015Q3

REPORT INFORMATION
  Report Type: Spontaneous
  Country: US (occurrence: US)
  Receive Date: 20150528
  Receipt Date: 20150916
  Transmission Date: 20151125
  Serious: Yes (Hospitalization, Other)
  Sender: FDA-Public Use
  Company Number: US-PFIZER INC-2015177289

PATIENT
  Age: 39 Year
  Sex: Female
  Weight: 58 kg

DRUGS (8)
  1. LYRICA [Suspect]
     Active Substance: PREGABALIN
     Indication: FIBROMYALGIA
     Dosage: 400 MG  TOTAL
  2. HUMALOG [Concomitant]
     Active Substance: INSULIN LISPRO
     Dosage: (6/10 UNITS) 2 DAYS
     Dates: start: 20150720
  3. LYRICA [Suspect]
     Active Substance: PREGABALIN
     Indication: RESTLESS LEGS SYNDROME
     Dosage: 200 MG, 3X/DAY
  4. NOVOLOG [Concomitant]
     Active Substance: INSULIN ASPART
     Indication: DIABETES MELLITUS
     Dosage: 6 UNITS BEFORE MEALS
     Route: 058
  5. LYRICA [Suspect]
     Active Substance: PREGABALIN
     Indication: LUMBAR RADICULOPATHY
  6. HUMULIN NOS [Concomitant]
     Active Substance: INSULIN HUMAN
     Dosage: 10 UNITS 2X/DAY, 2 DAYS
     Dates: start: 20150720
  7. LYRICA [Suspect]
     Active Substance: PREGABALIN
     Indication: DIABETIC NEUROPATHY
     Dosage: 500 MG, DAILY (TWO CAPSULES IN THE MORNING AND THREE CAPSULES AT NIGHT)
     Route: 048
     Dates: end: 201504
  8. SINGULAIR [Concomitant]
     Active Substance: MONTELUKAST SODIUM
     Indication: HYPERSENSITIVITY
     Dosage: 1 DF, DAILY
     Route: 048

REACTIONS (16)
  - Condition aggravated [Unknown]
  - Blood glucose increased [Unknown]
  - Drug withdrawal syndrome [Unknown]
  - Pyrexia [Unknown]
  - Appendicitis [Unknown]
  - Nasopharyngitis [Unknown]
  - Restless legs syndrome [Unknown]
  - Drug ineffective [Unknown]
  - Road traffic accident [Unknown]
  - Nausea [Unknown]
  - Hyperhidrosis [Unknown]
  - Condition aggravated [Unknown]
  - Gallbladder disorder [Unknown]
  - Drug tolerance [Unknown]
  - Nerve injury [Unknown]
  - Pain [Unknown]

NARRATIVE: CASE EVENT DATE: 2011
